FAERS Safety Report 23446187 (Version 1)
Quarter: 2024Q1

REPORT INFORMATION
  Report Type: Spontaneous
  Country: ZA (occurrence: ZA)
  Receive Date: 20240126
  Receipt Date: 20240126
  Transmission Date: 20240409
  Serious: Yes (Hospitalization)
  Sender: FDA-Public Use
  Company Number: ZA-ABBOTT-2024A-1376454

PATIENT
  Age: 75 Year
  Sex: Female

DRUGS (8)
  1. CREON [Suspect]
     Active Substance: PANCRELIPASE AMYLASE\PANCRELIPASE LIPASE\PANCRELIPASE PROTEASE
     Indication: Product used for unknown indication
     Dosage: 150 MILLIGRAM THREE TIMES A DAY?10000 (PANCREATIN)
     Route: 048
     Dates: start: 202311, end: 202311
  2. Omiflux [Concomitant]
     Indication: Ulcer
     Route: 048
  3. MELOXICAM [Concomitant]
     Active Substance: MELOXICAM
     Indication: Inflammation
     Route: 048
  4. HYDROCHLOROTHIAZIDE\TELMISARTAN [Concomitant]
     Active Substance: HYDROCHLOROTHIAZIDE\TELMISARTAN
     Indication: Hypertension
     Dosage: CO-PRITOR (TELMISARTAN AND HYDROCHLOROTHIAZIDE) 40/12.5 MILLIGRAM DAILY
     Route: 048
  5. POTASSIUM CHLORIDE [Concomitant]
     Active Substance: POTASSIUM CHLORIDE
     Indication: Mineral supplementation
     Route: 048
  6. ASPIRIN [Concomitant]
     Active Substance: ASPIRIN
     Indication: Anticoagulant therapy
     Dosage: MYOPRIN (ASPIRIN) 100 MILLIGRAM DAILY
     Route: 048
  7. SIMVASTATIN [Concomitant]
     Active Substance: SIMVASTATIN
     Indication: Blood cholesterol
     Dosage: ADCO-SIMVASTATIN (SIMVASTATIN ACID) 20 MILLIGRAM AT NIGHT
     Route: 048
  8. ETORICOXIB [Concomitant]
     Active Substance: ETORICOXIB
     Indication: Inflammation

REACTIONS (6)
  - Renal disorder [Recovering/Resolving]
  - Dizziness [Recovering/Resolving]
  - Protein total increased [Recovering/Resolving]
  - Blood calcium decreased [Recovering/Resolving]
  - Blood sodium decreased [Recovering/Resolving]
  - Blood potassium decreased [Recovering/Resolving]
